FAERS Safety Report 23043989 (Version 4)
Quarter: 2024Q3

REPORT INFORMATION
  Report Type: Report from Study
  Country: CA (occurrence: CA)
  Receive Date: 20231009
  Receipt Date: 20240704
  Transmission Date: 20241016
  Serious: Yes (Hospitalization)
  Sender: JOHNSON AND JOHNSON
  Company Number: CA-JNJFOC-20231010486

PATIENT
  Age: 53 Year
  Sex: Female
  Weight: 109 kg

DRUGS (1)
  1. REMICADE [Suspect]
     Active Substance: INFLIXIMAB
     Indication: Psoriasis
     Dosage: EXPIRY DATE: NOV 2025
     Route: 041

REACTIONS (4)
  - Breast cancer [Unknown]
  - Psoriasis [Unknown]
  - Off label use [Unknown]
  - Skin papilloma [Unknown]

NARRATIVE: CASE EVENT DATE: 20230929
